FAERS Safety Report 4677219-8 (Version None)
Quarter: 2005Q2

REPORT INFORMATION
  Report Type: 
  Country: None (occurrence: None)
  Receive Date: 20050526
  Receipt Date: 20050517
  Transmission Date: 20051028
  Serious: Yes (Death, Hospitalization)
  Sender: FDA-Public Use
  Company Number: 2005076194

PATIENT
  Age: 31 Year
  Sex: Female
  Weight: 57 kg

DRUGS (4)
  1. METHYLPREDNISOLONE [Suspect]
     Indication: INJURY ASPHYXIATION
     Dosage: SEE IMAGE
     Route: 042
     Dates: start: 20040824, end: 20040824
  2. METHYLPREDNISOLONE [Suspect]
     Indication: INJURY ASPHYXIATION
     Dosage: SEE IMAGE
     Route: 042
     Dates: start: 20040825, end: 20040830
  3. CELESTONE [Suspect]
     Indication: ILL-DEFINED DISORDER
     Dosage: 4 MG (1 IN 1 D), INTRAVENOUS
     Route: 042
     Dates: start: 20040902, end: 20040905
  4. RANITIDINE HYDROCHLORIDE [Suspect]
     Indication: ILL-DEFINED DISORDER
     Dosage: UNKNOWN
     Route: 065
     Dates: start: 20040827

REACTIONS (1)
  - GASTROINTESTINAL HAEMORRHAGE [None]
